FAERS Safety Report 14385689 (Version 1)
Quarter: 2018Q1

REPORT INFORMATION
  Report Type: Spontaneous
  Country: US (occurrence: US)
  Receive Date: 20180115
  Receipt Date: 20180115
  Transmission Date: 20180509
  Serious: Yes (Other)
  Sender: FDA-Public Use
  Company Number: US-SA-2017SA022553

PATIENT
  Age: 50 Year
  Sex: Female
  Weight: 92.53 kg

DRUGS (7)
  1. TAXOTERE [Suspect]
     Active Substance: DOCETAXEL
     Indication: BREAST CANCER FEMALE
     Route: 051
     Dates: start: 20140603, end: 20140603
  2. TAXOTERE [Suspect]
     Active Substance: DOCETAXEL
     Indication: BREAST CANCER FEMALE
     Route: 051
     Dates: start: 20140805, end: 20140805
  3. LEVOTHYROXINE. [Concomitant]
     Active Substance: LEVOTHYROXINE
     Route: 065
     Dates: start: 201505
  4. SYNTHROID [Concomitant]
     Active Substance: LEVOTHYROXINE SODIUM
     Route: 065
     Dates: start: 1997, end: 201502
  5. ARMOUR THYROID [Concomitant]
     Active Substance: THYROID, PORCINE
     Route: 065
     Dates: start: 201505
  6. ESTROGEL [Concomitant]
     Active Substance: ESTRADIOL
     Route: 065
     Dates: start: 1997, end: 201502
  7. ARMOUR THYROID [Concomitant]
     Active Substance: THYROID, PORCINE
     Route: 065
     Dates: start: 1997, end: 201502

REACTIONS (10)
  - Alopecia [Recovering/Resolving]
  - Hair colour changes [Unknown]
  - Anxiety [Unknown]
  - Emotional distress [Unknown]
  - Injury [Unknown]
  - Pain [Unknown]
  - Impaired work ability [Unknown]
  - Impaired quality of life [Unknown]
  - Psychological trauma [Unknown]
  - Hair texture abnormal [Unknown]

NARRATIVE: CASE EVENT DATE: 201503
